FAERS Safety Report 4419724-5 (Version None)
Quarter: 2004Q3

REPORT INFORMATION
  Report Type: 
  Country: None (occurrence: None)
  Receive Date: 20040804
  Receipt Date: 20040702
  Transmission Date: 20050211
  Serious: Yes (Hospitalization)
  Sender: FDA-Public Use
  Company Number: EWC040739866

PATIENT
  Age: 52 Year
  Sex: Female

DRUGS (7)
  1. HUMULIN L [Suspect]
     Indication: DIABETES MELLITUS NON-INSULIN-DEPENDENT
     Dosage: 8 IU DAY
     Dates: end: 20040620
  2. ACTRAPID (INSULIN) [Concomitant]
  3. ASPIRIN [Concomitant]
  4. GLUCOPHAGE [Concomitant]
  5. OLBETAM(ACIPIMOX) [Concomitant]
  6. IRON [Concomitant]
  7. FOLIC ACID [Concomitant]

REACTIONS (3)
  - DIARRHOEA [None]
  - DRUG INTERACTION [None]
  - HYPOGLYCAEMIA [None]
